FAERS Safety Report 6676423-7 (Version None)
Quarter: 2010Q2

REPORT INFORMATION
  Report Type: 
  Country: None (occurrence: None)
  Receive Date: 20100412
  Receipt Date: 20100331
  Transmission Date: 20101027
  Serious: Yes (Other)
  Sender: FDA-Public Use
  Company Number: PHHY2009JP52590

PATIENT
  Sex: Female
  Weight: 61 kg

DRUGS (9)
  1. CERTICAN [Suspect]
     Indication: HEART TRANSPLANT
     Dosage: 1.5 MG/ DAY
     Route: 048
     Dates: start: 20080722, end: 20080727
  2. CERTICAN [Interacting]
     Dosage: 2.5 MG/ DAY
     Route: 048
     Dates: start: 20080101, end: 20080814
  3. CERTICAN [Interacting]
     Dosage: 5.25 MG/ DAY
     Route: 048
     Dates: start: 20080815, end: 20081030
  4. CERTICAN [Interacting]
     Dosage: 5.5 MG/ DAY
     Route: 048
     Dates: start: 20081031
  5. TEGRETOL [Interacting]
     Indication: EPILEPSY
     Route: 048
  6. TACROLIMUS [Interacting]
     Indication: HEART TRANSPLANT
     Dosage: 2.5 MG
     Route: 048
  7. CELLCEPT [Concomitant]
     Indication: HEART TRANSPLANT
     Dosage: UNK
     Route: 048
     Dates: start: 20080722
  8. PREDNISOLONE [Concomitant]
     Indication: HEART TRANSPLANT
  9. VALPROATE SODIUM [Concomitant]
     Indication: EPILEPSY

REACTIONS (5)
  - CORONARY ARTERY DISEASE [None]
  - DRUG INTERACTION [None]
  - DRUG LEVEL DECREASED [None]
  - EPSTEIN-BARR VIRUS ANTIGEN POSITIVE [None]
  - IMMUNOSUPPRESSANT DRUG LEVEL INCREASED [None]
